FAERS Safety Report 9365078 (Version 1)
Quarter: 2013Q2

REPORT INFORMATION
  Report Type: Spontaneous
  Country: SE (occurrence: SE)
  Receive Date: 20130624
  Receipt Date: 20130624
  Transmission Date: 20140414
  Serious: Yes (Other)
  Sender: FDA-Public Use
  Company Number: SE-PFIZER INC-2013092823

PATIENT
  Age: 68 Year
  Sex: Male

DRUGS (5)
  1. SALAZOPYRIN [Suspect]
     Indication: COLITIS ULCERATIVE
     Dosage: 4 G, 1X/DAY
     Route: 048
     Dates: start: 2009
  2. SALAZOPYRIN [Suspect]
     Dosage: 5 G, 1X/DAY
     Route: 048
     Dates: start: 20121201, end: 20130311
  3. ASACOL [Concomitant]
  4. PRED-CLYSMA [Concomitant]
  5. ENALAPRIL [Concomitant]
     Dosage: 5 MG, 1X/DAY
     Dates: start: 2011

REACTIONS (3)
  - Neuropathy peripheral [Unknown]
  - Hypoaesthesia [Recovering/Resolving]
  - Pain [Recovering/Resolving]
